FAERS Safety Report 16246785 (Version 1)
Quarter: 2019Q2

REPORT INFORMATION
  Report Type: Spontaneous
  Country: BE (occurrence: BE)
  Receive Date: 20190427
  Receipt Date: 20190427
  Transmission Date: 20190711
  Serious: Yes (Death)
  Sender: FDA-Public Use
  Company Number: BE-ACCORD-124115

PATIENT
  Age: 38 Year
  Sex: Male

DRUGS (1)
  1. ESCITALOPRAM [Suspect]
     Active Substance: ESCITALOPRAM OXALATE
     Indication: ASTHENIA
     Dates: start: 20181201, end: 20181207

REACTIONS (1)
  - Completed suicide [Fatal]
